FAERS Safety Report 6126497-7 (Version None)
Quarter: 2009Q1

REPORT INFORMATION
  Report Type: 
  Country: None (occurrence: None)
  Receive Date: 20090320
  Receipt Date: 20090309
  Transmission Date: 20090719
  Serious: Yes (Other)
  Sender: FDA-Public Use
  Company Number: JP-PFIZER INC-2009181436

PATIENT

DRUGS (2)
  1. AZULFIDINE [Suspect]
     Dosage: 500 MG, 2X/DAY
     Dates: start: 20090107
  2. PABRON S GOLD [Concomitant]
     Dates: start: 20090122

REACTIONS (5)
  - OCULOMUCOCUTANEOUS SYNDROME [None]
  - OEDEMA MOUTH [None]
  - RASH GENERALISED [None]
  - SKIN EXFOLIATION [None]
  - TOXIC EPIDERMAL NECROLYSIS [None]
